FAERS Safety Report 17082166 (Version 4)
Quarter: 2019Q4

REPORT INFORMATION
  Report Type: Spontaneous
  Country: US (occurrence: US)
  Receive Date: 20191127
  Receipt Date: 20191219
  Transmission Date: 20200122
  Serious: Yes (Other)
  Sender: FDA-Public Use
  Company Number: NVSC2019US048707

PATIENT
  Age: 68 Year
  Sex: Female
  Weight: 60 kg

DRUGS (9)
  1. ARGATROBAN. [Suspect]
     Active Substance: ARGATROBAN
     Dosage: 1.8 UNK (MICROGRAM/KILOGRAM, 1/1MINUTE)
     Route: 042
     Dates: start: 20190723, end: 20190724
  2. ARGATROBAN. [Suspect]
     Active Substance: ARGATROBAN
     Dosage: 2.4 UNK (MICROGRAM/KILOGRAM, 1/1MINUTE)
     Route: 042
     Dates: start: 20190724, end: 20190724
  3. ARGATROBAN. [Suspect]
     Active Substance: ARGATROBAN
     Dosage: 1.1 UNK (MICROGRAM/KILOGRAM, 1/1MINUTE)
     Route: 042
     Dates: start: 20190723, end: 20190723
  4. HEPARIN [Concomitant]
     Active Substance: HEPARIN SODIUM
     Indication: PERIPHERAL ISCHAEMIA
     Dosage: UNK
     Route: 065
  5. ARGATROBAN. [Suspect]
     Active Substance: ARGATROBAN
     Indication: HEPARIN-INDUCED THROMBOCYTOPENIA
     Dosage: 2.8 UNK (MULTIPLE UPTITRATIONS OF THE DOSE TO 2.8?G/KG/MIN)
     Route: 065
  6. ARGATROBAN. [Suspect]
     Active Substance: ARGATROBAN
     Dosage: 1 UNK (MICROGRAM/KILOGRAM, 1/1MINUTE)
     Route: 042
     Dates: start: 20190723, end: 20190723
  7. ARGATROBAN. [Suspect]
     Active Substance: ARGATROBAN
     Dosage: 2.8 UNK (MICROGRAM/KILOGRAM, 1/1MINUTE)
     Route: 042
     Dates: start: 20190724
  8. ARGATROBAN. [Suspect]
     Active Substance: ARGATROBAN
     Dosage: 1.4 UNK (MICROGRAM/KILOGRAM, 1/1MINUTE)
     Route: 042
     Dates: start: 20190723, end: 20190723
  9. ARGATROBAN. [Suspect]
     Active Substance: ARGATROBAN
     Dosage: 1.65 UNK (MICROGRAM/KILOGRAM, 1/1MINUTE)
     Route: 042
     Dates: start: 20190723, end: 20190723

REACTIONS (1)
  - Drug resistance [Unknown]

NARRATIVE: CASE EVENT DATE: 20190723
